FAERS Safety Report 9030317 (Version 1)
Quarter: 2013Q1

REPORT INFORMATION
  Report Type: Spontaneous
  Country: GB (occurrence: GB)
  Receive Date: 20130122
  Receipt Date: 20130122
  Transmission Date: 20140127
  Serious: Yes (Hospitalization)
  Sender: FDA-Public Use
  Company Number: GB-PFIZER INC-2013021693

PATIENT
  Sex: Male

DRUGS (1)
  1. AXITINIB [Suspect]

REACTIONS (2)
  - Left ventricular failure [Unknown]
  - Pulmonary oedema [Unknown]
